FAERS Safety Report 9908599 (Version 1)
Quarter: 2014Q1

REPORT INFORMATION
  Report Type: Spontaneous
  Country: US (occurrence: None)
  Receive Date: 20140211
  Receipt Date: 20140211
  Transmission Date: 20141002
  Serious: Yes (Death, Other)
  Sender: FDA-Public Use
  Company Number: DSC201401-000002

PATIENT
  Age: 1 Day
  Sex: Male
  Weight: 1.78 kg

DRUGS (5)
  1. SURFAXIN [Suspect]
     Indication: NEONATAL RESPIRATORY DISTRESS SYNDROME
     Dates: start: 20140125, end: 20140126
  2. AMPICILLIN (AMPICILLIN) [Concomitant]
  3. GENTAMYCIN (GENTAMYCIN) [Concomitant]
  4. DOPAMINE (DOPAMINE) [Concomitant]
  5. NITROUS OXIDE (NITROUS OXIDE) [Concomitant]

REACTIONS (5)
  - No therapeutic response [None]
  - Bradycardia neonatal [None]
  - Oxygen saturation decreased [None]
  - General physical health deterioration [None]
  - Medical device complication [None]
